FAERS Safety Report 6045299 (Version 11)
Quarter: 2012Q4

REPORT INFORMATION
  Report Type: 
  Country: US (occurrence: US)
  Receive Date: 20060515
  Receipt Date: 20121114
  Transmission Date: 20130627
  Serious: Yes (Death, Life-Threatening, Hospitalization, Other)
  Sender: FDA-Public Use
  Company Number: PHEH2006US05809

PATIENT
  Age: 73 Year
  Sex: Female
  Weight: 68 kg

DRUGS (28)
  1. ZOMETA [Suspect]
     Indication: NEOPLASM MALIGNANT
     Dates: start: 20041129
  2. ANTINEOPLASTIC AGENTS [Concomitant]
  3. NORMODYNE [Concomitant]
  4. CELEBREX [Concomitant]
  5. NEXIUM [Concomitant]
  6. PROCRIT [Concomitant]
  7. SERTRALINE [Concomitant]
  8. LORAZEPAM [Concomitant]
  9. PANTOPRAZOLE [Concomitant]
  10. TOLTERODINE L-TARTRATE [Concomitant]
  11. COMBIVENT                               /GFR/ [Concomitant]
  12. LASIX [Concomitant]
  13. POTASSIUM CHLORIDE [Concomitant]
  14. MOTRIN [Concomitant]
  15. TYLENOL [Concomitant]
  16. VICODIN [Concomitant]
  17. STRESSTABS [Concomitant]
  18. MYLANTA                                 /AUS/ [Concomitant]
  19. METOPROLOL TARTRATE [Concomitant]
  20. OXYCODONE HYDROCHLORIDE [Concomitant]
  21. MILK OF MAGNESIA [Concomitant]
  22. DYAZIDE [Concomitant]
  23. PRILOSEC [Concomitant]
  24. LIPITOR                                 /NET/ [Concomitant]
  25. ALLEGRA [Concomitant]
  26. XELODA [Concomitant]
  27. TAXOTERE [Concomitant]
  28. HERCEPTIN ^GENENTECH^ [Concomitant]

REACTIONS (82)
  - Neoplasm progression [Fatal]
  - Malignant neoplasm progression [Fatal]
  - Breast oedema [Fatal]
  - Lymphatic obstruction [Fatal]
  - Purulent discharge [Unknown]
  - Osteonecrosis of jaw [Unknown]
  - Exposed bone in jaw [Unknown]
  - Primary sequestrum [Unknown]
  - Oral infection [Unknown]
  - Swelling [Unknown]
  - Jaw disorder [Unknown]
  - Erythema [Unknown]
  - Tooth abscess [Unknown]
  - Toothache [Unknown]
  - Fistula [Unknown]
  - Dental caries [Unknown]
  - Stomatitis [Unknown]
  - Decubitus ulcer [Unknown]
  - Respiratory distress [Unknown]
  - Unresponsive to stimuli [Unknown]
  - Cardiac failure congestive [Unknown]
  - Depressed level of consciousness [Unknown]
  - Malignant pleural effusion [Unknown]
  - Atelectasis [Unknown]
  - Pleural effusion [Unknown]
  - Pericardial effusion [Unknown]
  - Hypercapnia [Unknown]
  - Hyponatraemia [Unknown]
  - Hypokalaemia [Recovering/Resolving]
  - Blood potassium increased [Unknown]
  - Thrombosis [Unknown]
  - Nausea [Unknown]
  - Cardiomegaly [Unknown]
  - Hepatic lesion [Unknown]
  - Coronary artery disease [Unknown]
  - Arteriosclerosis [Unknown]
  - Adrenal neoplasm [Unknown]
  - Hiatus hernia [Unknown]
  - Dyspnoea [Unknown]
  - Vascular calcification [Unknown]
  - Rib fracture [Unknown]
  - Deep vein thrombosis [Unknown]
  - Lymphadenopathy [Unknown]
  - Pneumonia [Unknown]
  - Pulmonary oedema [Unknown]
  - Intervertebral disc degeneration [Unknown]
  - Cystocele [Unknown]
  - Compression fracture [Unknown]
  - Renal cyst [Unknown]
  - Scoliosis [Unknown]
  - Anaemia [Unknown]
  - Hypertension [Unknown]
  - Leukocytosis [Unknown]
  - Renal failure [Unknown]
  - Asthenia [Unknown]
  - Lung neoplasm malignant [Unknown]
  - Tooth loss [Unknown]
  - Depression [Unknown]
  - Gait disturbance [Unknown]
  - Headache [Unknown]
  - Fall [Unknown]
  - Visual acuity reduced [Unknown]
  - Hypoacusis [Unknown]
  - Decreased activity [Unknown]
  - Pain in extremity [Unknown]
  - Feeling abnormal [Unknown]
  - Vomiting [Unknown]
  - Fatigue [Unknown]
  - Balance disorder [Unknown]
  - Oedema [Unknown]
  - Anxiety [Unknown]
  - Abdominal discomfort [Unknown]
  - Axillary mass [Unknown]
  - Gastrooesophageal reflux disease [Unknown]
  - Nephritis [Unknown]
  - Diverticulum [Unknown]
  - Neutropenia [Unknown]
  - Left atrial dilatation [Unknown]
  - Right atrial dilatation [Unknown]
  - Tachycardia [Unknown]
  - Tinnitus [Unknown]
  - Deafness neurosensory [Unknown]
